FAERS Safety Report 7328936-2 (Version None)
Quarter: 2011Q1

REPORT INFORMATION
  Report Type: 
  Country: None (occurrence: None)
  Receive Date: 20110218
  Receipt Date: 20110113
  Transmission Date: 20110831
  Serious: Yes (Hospitalization)
  Sender: FDA-Public Use
  Company Number: SE-021898

PATIENT
  Age: 76 Year
  Sex: Female

DRUGS (1)
  1. (CHLORAMBUCIL) [Suspect]
     Indication: CHRONIC LYMPHOCYTIC LEUKAEMIA
     Dosage: 10 MG/M2 AT DAYS 1-7 EVERY 28 DAYS ORAL
     Route: 048
     Dates: start: 20101215

REACTIONS (4)
  - ERYSIPELAS [None]
  - SOFT TISSUE INFECTION [None]
  - PYREXIA [None]
  - ACUTE FEBRILE NEUTROPHILIC DERMATOSIS [None]
